FAERS Safety Report 20623085 (Version 1)
Quarter: 2022Q1

REPORT INFORMATION
  Report Type: Spontaneous
  Country: US (occurrence: US)
  Receive Date: 20220322
  Receipt Date: 20220322
  Transmission Date: 20220423
  Serious: No
  Sender: FDA-Public Use
  Company Number: US-LANTHEUS-LMI-2021-01596

PATIENT
  Sex: Male

DRUGS (1)
  1. PYLARIFY [Suspect]
     Active Substance: PIFLUFOLASTAT F-18
     Indication: Positron emission tomogram
     Dosage: 9 MILLICURIE
     Route: 042
     Dates: start: 20211216, end: 20211216

REACTIONS (3)
  - Product preparation error [Unknown]
  - Drug ineffective [Unknown]
  - Radioisotope scan abnormal [Unknown]

NARRATIVE: CASE EVENT DATE: 20211216
